FAERS Safety Report 24593809 (Version 1)
Quarter: 2024Q4

REPORT INFORMATION
  Report Type: Spontaneous
  Country: US (occurrence: US)
  Receive Date: 20241108
  Receipt Date: 20241108
  Transmission Date: 20250114
  Serious: Yes (Other)
  Sender: PFIZER
  Company Number: US-PFIZER INC-PV202400144154

PATIENT
  Age: 69 Year
  Sex: Female

DRUGS (1)
  1. TUKYSA [Suspect]
     Active Substance: TUCATINIB
     Dosage: 150MG; 2 TABLETS TWICE DAILY

REACTIONS (4)
  - Pneumonia [Unknown]
  - Tympanic membrane disorder [Unknown]
  - Hypoacusis [Unknown]
  - COVID-19 [Unknown]
